FAERS Safety Report 5400218-5 (Version None)
Quarter: 2007Q3

REPORT INFORMATION
  Report Type: 
  Country: None (occurrence: None)
  Receive Date: 20070727
  Receipt Date: 20070727
  Transmission Date: 20080115
  Serious: Yes (Hospitalization)
  Sender: FDA-Public Use
  Company Number: None

PATIENT
  Age: 85 Year
  Sex: Male
  Weight: 83.9154 kg

DRUGS (1)
  1. AVELOX [Suspect]
     Indication: PNEUMONIA
     Dosage: 400 DAILY PO
     Route: 048
     Dates: start: 20070726, end: 20070726

REACTIONS (3)
  - CONDITION AGGRAVATED [None]
  - DYSPNOEA [None]
  - MYASTHENIA GRAVIS [None]
